FAERS Safety Report 6878119-5 (Version None)
Quarter: 2010Q2

REPORT INFORMATION
  Report Type: 
  Country: None (occurrence: None)
  Receive Date: 20100616
  Receipt Date: 20100315
  Transmission Date: 20101027
  Serious: No
  Sender: FDA-Public Use
  Company Number: DSA_42795_2010

PATIENT
  Age: 36 Year
  Sex: Male

DRUGS (9)
  1. XENAZINE [Suspect]
     Indication: HUNTINGTON'S CHOREA
     Dosage: 12.5 MG TID ORAL, 25 MG TID ORAL
     Route: 048
  2. XENAZINE [Suspect]
     Indication: HUNTINGTON'S CHOREA
     Dosage: 12.5 MG TID ORAL, 25 MG TID ORAL
     Route: 048
     Dates: start: 20090101
  3. TRAZODONE HCL [Concomitant]
  4. KLONOPIN [Concomitant]
  5. ABILIFY [Concomitant]
  6. ARICEPT [Concomitant]
  7. NALTREXONE [Concomitant]
  8. COQ10 [Concomitant]
  9. FOLIC ACID [Concomitant]

REACTIONS (1)
  - INSOMNIA [None]
